FAERS Safety Report 10384384 (Version 1)
Quarter: 2014Q1

REPORT INFORMATION
  Report Type: Spontaneous
  Country: US (occurrence: None)
  Receive Date: 20140306
  Receipt Date: 20140306
  Transmission Date: 20141002
  Serious: Yes (Other)
  Sender: FDA-Public Use
  Company Number: 163-21880-13090410

PATIENT
  Age: 56 Year
  Sex: Female
  Weight: 64.41 kg

DRUGS (3)
  1. REVLIMIB (LENALIDOMIDE) (25 MILLIGRAM, CAPSULES) [Suspect]
     Indication: PLASMA CELL MYELOMA
     Route: 048
     Dates: start: 20110401
  2. HYDROMORPHONE HCL (HYDROMORPHONE HYDROCHLORIDE) [Concomitant]
  3. BABY ASPIRIN (ACETYLSALICYLIC ACID) (TABLETS) [Concomitant]

REACTIONS (2)
  - Dysuria [None]
  - Vaginal haemorrhage [None]
